FAERS Safety Report 24431044 (Version 1)
Quarter: 2024Q4

REPORT INFORMATION
  Report Type: Spontaneous
  Country: CH (occurrence: CH)
  Receive Date: 20241014
  Receipt Date: 20241014
  Transmission Date: 20250114
  Serious: Yes (Life-Threatening, Other)
  Sender: CHEPLAPHARM
  Company Number: None

PATIENT
  Age: 37 Year
  Sex: Female
  Weight: 60 kg

DRUGS (4)
  1. OLANZAPINE [Suspect]
     Active Substance: OLANZAPINE
     Indication: Product used for unknown indication
     Dosage: 10 MG N/A DOSE EVERY 1 DAY?DAILY DOSE: 10 MILLIGRAM
     Route: 048
     Dates: start: 20240605, end: 20240613
  2. ARIPIPRAZOLE [Suspect]
     Active Substance: ARIPIPRAZOLE
     Indication: Product used for unknown indication
     Dosage: 15 MG N/A DOSE EVERY 1 DAY. ARIPIPRAZOLE 15 MG P.O. 1-0-0-0 ?DAILY DOSE: 15 MILLIGRAM
     Route: 048
     Dates: start: 20240605, end: 202406
  3. ESCITALOPRAM [Suspect]
     Active Substance: ESCITALOPRAM OXALATE
     Indication: Product used for unknown indication
     Dosage: 10 MG N/A DOSE EVERY 1 DAY. ESCITALOPRAM 10 MG P.O. 1-0-0-0 ?DAILY DOSE: 10 MILLIGRAM
     Route: 048
     Dates: start: 20240605, end: 20240613
  4. TRAZODONE HYDROCHLORIDE [Suspect]
     Active Substance: TRAZODONE HYDROCHLORIDE
     Indication: Product used for unknown indication
     Dosage: 100 MG N/A DOSE EVERY 1 DAY. TRITTICO (TRAZODONE) 100 MG P.O. 1-0-0-0 ?DAILY DOSE: 10 MILLIGRAM
     Route: 048
     Dates: start: 20240605, end: 20240613

REACTIONS (10)
  - Cognitive disorder [Not Recovered/Not Resolved]
  - Suicidal ideation [Not Recovered/Not Resolved]
  - Muscle twitching [Not Recovered/Not Resolved]
  - Insomnia [Not Recovered/Not Resolved]
  - Dizziness [Not Recovered/Not Resolved]
  - Nausea [Not Recovered/Not Resolved]
  - Emotional poverty [Not Recovered/Not Resolved]
  - Headache [Not Recovered/Not Resolved]
  - Anorgasmia [Unknown]
  - Hypogeusia [Unknown]

NARRATIVE: CASE EVENT DATE: 20240601
